FAERS Safety Report 24299768 (Version 1)
Quarter: 2024Q3

REPORT INFORMATION
  Report Type: Spontaneous
  Country: CA (occurrence: CA)
  Receive Date: 20240909
  Receipt Date: 20240909
  Transmission Date: 20241016
  Serious: No
  Sender: JAZZ
  Company Number: CA-JAZZ PHARMACEUTICALS-2024-CA-011313

PATIENT

DRUGS (2)
  1. RYLAZE [Suspect]
     Active Substance: ASPARAGINASE ERWINIA CHRYSANTHEMI (RECOMBINANT)-RYWN
     Indication: Product used for unknown indication
     Dosage: 25 MILLIGRAM/SQ. METER (MWF)
  2. RYLAZE [Suspect]
     Active Substance: ASPARAGINASE ERWINIA CHRYSANTHEMI (RECOMBINANT)-RYWN
     Dosage: 25 MILLIGRAM/SQ. METER(Q 48H)

REACTIONS (1)
  - Hypoglycaemia [Unknown]
